FAERS Safety Report 5662394-9 (Version None)
Quarter: 2008Q1

REPORT INFORMATION
  Report Type: 
  Country: None (occurrence: None)
  Receive Date: 20080313
  Receipt Date: 20080310
  Transmission Date: 20080703
  Serious: Yes (Other)
  Sender: FDA-Public Use
  Company Number: GB-SP-2008-00746

PATIENT
  Age: 79 Year
  Sex: Male

DRUGS (4)
  1. IMMUCYST [Suspect]
     Indication: BLADDER CANCER
     Route: 043
     Dates: start: 20060406
  2. IMMUCYST [Suspect]
     Route: 043
     Dates: start: 20060406
  3. SIMVASTATIN [Concomitant]
  4. UNSPECIFIED ANALGESICS [Concomitant]

REACTIONS (2)
  - MALAISE [None]
  - ORCHITIS [None]
